FAERS Safety Report 11374816 (Version 1)
Quarter: 2015Q3

REPORT INFORMATION
  Report Type: Spontaneous
  Country: US (occurrence: US)
  Receive Date: 20150813
  Receipt Date: 20150813
  Transmission Date: 20151125
  Serious: No
  Sender: FDA-Public Use
  Company Number: US-SUN PHARMACEUTICAL INDUSTRIES LTD-2014SUN02055

PATIENT

DRUGS (3)
  1. METFORMIN HCL ER TABLETS, 500 MG [Concomitant]
     Indication: DIABETES MELLITUS
     Dosage: 2 DF, BID (2 DF IN MORNING AND 2 DF IN EVENING)
  2. ALPRAZOLAM TABS C-IV 1MG [Suspect]
     Active Substance: ALPRAZOLAM
     Indication: ANXIETY
     Dosage: 1 DF, QD (AT BED TIME)
     Route: 048
     Dates: start: 20140812
  3. LISINOPRIL. [Concomitant]
     Active Substance: LISINOPRIL
     Dosage: 2.5 MG, UNK

REACTIONS (1)
  - Drug ineffective [Not Recovered/Not Resolved]

NARRATIVE: CASE EVENT DATE: 20140812
